FAERS Safety Report 8170765-4 (Version None)
Quarter: 2012Q1

REPORT INFORMATION
  Report Type: 
  Country: None (occurrence: None)
  Receive Date: 20120105
  Receipt Date: 20101203
  Transmission Date: 20120608
  Serious: Yes (Other)
  Sender: FDA-Public Use
  Company Number: 2011P1009137

PATIENT
  Age: 69 Year
  Sex: Female
  Weight: 64.4108 kg

DRUGS (2)
  1. ETHAMBUTOL HYDROCHLORIDE [Suspect]
     Dosage: 2 TABS;BID;PO
     Route: 048
     Dates: start: 20100201, end: 20101101
  2. ATENOLOL [Concomitant]

REACTIONS (1)
  - OPTIC NEUROPATHY [None]
